FAERS Safety Report 19730168 (Version 1)
Quarter: 2021Q3

REPORT INFORMATION
  Report Type: Spontaneous
  Country: FR (occurrence: FR)
  Receive Date: 20210820
  Receipt Date: 20210820
  Transmission Date: 20211014
  Serious: Yes (Hospitalization, Other)
  Sender: FDA-Public Use
  Company Number: FR-ELI_LILLY_AND_COMPANY-FR202108005571

PATIENT
  Age: 60 Year
  Sex: Female

DRUGS (3)
  1. ZYPADHERA [Suspect]
     Active Substance: OLANZAPINE PAMOATE
     Indication: SCHIZOPHRENIA
     Dosage: 405 MG, EVERY 28 DAYS
     Route: 065
  2. ZYPADHERA [Suspect]
     Active Substance: OLANZAPINE PAMOATE
     Indication: SCHIZOPHRENIA
     Dosage: 405 MG, EVERY 28 DAYS
     Route: 065
  3. ZYPADHERA [Suspect]
     Active Substance: OLANZAPINE PAMOATE
     Indication: SCHIZOPHRENIA
     Dosage: 405 MG, EVERY 28 DAYS
     Route: 065

REACTIONS (7)
  - Post-injection delirium sedation syndrome [Unknown]
  - Agitation [Unknown]
  - Post-injection delirium sedation syndrome [Unknown]
  - Coma [Unknown]
  - Confusional state [Unknown]
  - Dyspnoea [Unknown]
  - Hypotension [Unknown]

NARRATIVE: CASE EVENT DATE: 2019
